FAERS Safety Report 9542882 (Version 1)
Quarter: 2013Q3

REPORT INFORMATION
  Report Type: Spontaneous
  Country: US (occurrence: US)
  Receive Date: 20130923
  Receipt Date: 20130923
  Transmission Date: 20140515
  Serious: No
  Sender: FDA-Public Use
  Company Number: US-PFIZER INC-2013270906

PATIENT
  Age: 41 Year
  Sex: Male
  Weight: 49.9 kg

DRUGS (1)
  1. GENOTROPIN MQ [Suspect]
     Indication: BLOOD GROWTH HORMONE ABNORMAL
     Dosage: 0.4 MG, UNK (ONE TIME A DAY FOR FIVE DAYS IN A WEEK)
     Dates: start: 201309, end: 201309

REACTIONS (1)
  - Vision blurred [Not Recovered/Not Resolved]
